FAERS Safety Report 25618951 (Version 1)
Quarter: 2025Q3

REPORT INFORMATION
  Report Type: Spontaneous
  Country: US (occurrence: US)
  Receive Date: 20250729
  Receipt Date: 20250729
  Transmission Date: 20251020
  Serious: Yes (Hospitalization, Other)
  Sender: NOVO NORDISK
  Company Number: US-NOVOPROD-1485093

PATIENT
  Age: 79 Year
  Sex: Female

DRUGS (4)
  1. WEGOVY [Suspect]
     Active Substance: SEMAGLUTIDE
     Indication: Cardiac disorder
     Dosage: 1.7 MG, QW
     Dates: start: 20241106
  2. WEGOVY [Suspect]
     Active Substance: SEMAGLUTIDE
     Indication: Diabetes mellitus
  3. WEGOVY [Suspect]
     Active Substance: SEMAGLUTIDE
     Indication: Glycosylated haemoglobin
  4. REPATHA [Concomitant]
     Active Substance: EVOLOCUMAB
     Indication: Blood cholesterol increased
     Dosage: 1 ML, QW
     Dates: start: 2023

REACTIONS (4)
  - Cardiac ablation [Recovered/Resolved]
  - Discomfort [Unknown]
  - Fluid retention [Unknown]
  - Product use in unapproved indication [Unknown]

NARRATIVE: CASE EVENT DATE: 20250714
